FAERS Safety Report 4759642-6 (Version None)
Quarter: 2005Q3

REPORT INFORMATION
  Report Type: 
  Country: None (occurrence: None)
  Receive Date: 20050831
  Receipt Date: 20050819
  Transmission Date: 20060218
  Serious: Yes (Hospitalization)
  Sender: FDA-Public Use
  Company Number: 216725

PATIENT
  Sex: Male

DRUGS (11)
  1. AVASTIN [Suspect]
     Indication: COLORECTAL CANCER METASTATIC
     Dosage: 5 MG/KG,
     Dates: start: 20050720
  2. OXALIPLATIN (OXALIPLATIN) [Concomitant]
  3. FLUOROURACIL [Concomitant]
  4. LEUCOVORIN CALCIUM [Concomitant]
  5. NORVASC [Concomitant]
  6. BENICAR HCT (HYDROCHLOROTHIAZIDE, OLMESARTAN MEDOXOMIL) [Concomitant]
  7. SINGULAIR [Concomitant]
  8. TRAMADOL HCL [Concomitant]
  9. NEURONTIN [Concomitant]
  10. VICODIN (HYDROCODONE BITARTRATE, ACETAMINOPHEN) [Concomitant]
  11. ROBAXIN [Concomitant]

REACTIONS (12)
  - BLOOD PRESSURE INCREASED [None]
  - BLOOD SODIUM INCREASED [None]
  - CHEST DISCOMFORT [None]
  - COORDINATION ABNORMAL [None]
  - DIZZINESS [None]
  - GAIT DISTURBANCE [None]
  - MALAISE [None]
  - MYOCARDIAL INFARCTION [None]
  - PITTING OEDEMA [None]
  - RED BLOOD CELL SEDIMENTATION RATE INCREASED [None]
  - SYNCOPE [None]
  - TACHYCARDIA [None]
